FAERS Safety Report 23281710 (Version 4)
Quarter: 2024Q3

REPORT INFORMATION
  Report Type: Report from Study
  Country: GB (occurrence: GB)
  Receive Date: 20231211
  Receipt Date: 20240812
  Transmission Date: 20241017
  Serious: Yes (Hospitalization, Other)
  Sender: AMGEN
  Company Number: GB-Vifor (International) Inc.-VIT-2023-09535

PATIENT
  Age: 20 Year
  Sex: Male
  Weight: 106.6 kg

DRUGS (20)
  1. AVACOPAN [Suspect]
     Active Substance: AVACOPAN
     Indication: Anti-neutrophil cytoplasmic antibody positive vasculitis
     Dosage: TWICE DAILY (BD)
     Route: 048
     Dates: start: 20231031
  2. RITUXIMAB [Suspect]
     Active Substance: RITUXIMAB
     Indication: Anti-neutrophil cytoplasmic antibody positive vasculitis
     Dosage: SINGLE IV INFUSION. COMPLETION OF PLANNED COURSE.
     Route: 042
     Dates: start: 20231107, end: 20231107
  3. RITUXIMAB [Suspect]
     Active Substance: RITUXIMAB
     Dosage: ONLY ONCE. SINGLE IV INFUSION. COMPLETION OF PLANNED COURSE
     Route: 042
     Dates: start: 20231204, end: 20231204
  4. RITUXIMAB [Suspect]
     Active Substance: RITUXIMAB
     Dosage: ONLY ONCE. SINGLE IV INFUSION. COMPLETION OF PLANNED COURSE.
     Route: 042
     Dates: start: 20240422, end: 20240422
  5. RITUXIMAB [Suspect]
     Active Substance: RITUXIMAB
     Dosage: ONLY ONCE. COMPLETION OF PLANNED COURSE.
     Route: 042
     Dates: start: 20231121, end: 20231121
  6. CYCLOPHOSPHAMIDE [Suspect]
     Active Substance: CYCLOPHOSPHAMIDE
     Indication: Anti-neutrophil cytoplasmic antibody positive vasculitis
     Dosage: COMPLETION OF PLANNED COURSE
     Route: 042
     Dates: start: 20231101, end: 20231114
  7. HUMAN PLASMA [Concomitant]
     Active Substance: HUMAN PLASMA
     Indication: Anti-neutrophil cytoplasmic antibody positive vasculitis
     Dosage: COMPLETION OF PLANNED COURSE.
     Dates: start: 20231031, end: 20231106
  8. PREDNISOLONE [Concomitant]
     Active Substance: PREDNISOLONE
     Indication: Anti-neutrophil cytoplasmic antibody positive vasculitis
     Dosage: 60 MILLIGRAM
     Dates: start: 20231031, end: 20231102
  9. PREDNISOLONE [Concomitant]
     Active Substance: PREDNISOLONE
     Dosage: COMPLETION OF PLANNED COURSE
     Dates: start: 20231103, end: 20231109
  10. PREDNISOLONE [Concomitant]
     Active Substance: PREDNISOLONE
     Dosage: COMPLETION OF PLANNED COURSE
     Dates: start: 20231124, end: 20231204
  11. PREDNISOLONE [Concomitant]
     Active Substance: PREDNISOLONE
     Dosage: COMPLETION OF PLANNED COURSE
     Dates: start: 20231201, end: 20231229
  12. PREDNISOLONE [Concomitant]
     Active Substance: PREDNISOLONE
     Dosage: 30 MILLIGRAM, QD
     Dates: start: 20240414, end: 20240423
  13. PREDNISOLONE [Concomitant]
     Active Substance: PREDNISOLONE
     Dosage: COMPLETION OF PLANNED COURSE.
     Dates: start: 20231230, end: 20240112
  14. PREDNISOLONE [Concomitant]
     Active Substance: PREDNISOLONE
     Dosage: COMPLETION OF PLANNED COURSE
     Dates: start: 20240113, end: 20240126
  15. PREDNISOLONE [Concomitant]
     Active Substance: PREDNISOLONE
     Dosage: 15 MILLIGRAM, QD
     Dates: start: 20240202
  16. METHYLPREDNISOLONE [Concomitant]
     Active Substance: METHYLPREDNISOLONE
     Indication: Anti-neutrophil cytoplasmic antibody positive vasculitis
     Dosage: UNKNOWN DOSE GRAM ONCE ONLY
     Dates: start: 20231204, end: 20231204
  17. COTRIMOXAZOLE [Concomitant]
     Active Substance: SULFAMETHOXAZOLE\TRIMETHOPRIM
     Indication: Infection prophylaxis
     Dosage: UNKNOWN DOSE IN MG
     Dates: start: 20231031
  18. DEXAMETHASONE [Concomitant]
     Active Substance: DEXAMETHASONE
     Indication: Episcleritis
     Dosage: 1 DROP, QD
     Route: 061
     Dates: start: 20231113
  19. OMEPRAZOLE [Concomitant]
     Active Substance: OMEPRAZOLE
     Indication: Prophylaxis against gastrointestinal ulcer
     Dosage: ORAL (PO)
     Dates: start: 20231107
  20. THEICAL D3 [Concomitant]
     Indication: Vitamin supplementation
     Dosage: 2.5 GRAM, QD
     Dates: start: 20231125

REACTIONS (6)
  - Epididymitis [Recovered/Resolved]
  - Lower respiratory tract infection [Recovered/Resolved]
  - C-reactive protein increased [Recovering/Resolving]
  - Blood creatinine increased [Not Recovered/Not Resolved]
  - Drug ineffective [Unknown]
  - Facial nerve disorder [Recovered/Resolved]

NARRATIVE: CASE EVENT DATE: 20231124
